FAERS Safety Report 13545483 (Version 3)
Quarter: 2020Q2

REPORT INFORMATION
  Report Type: Spontaneous
  Country: US (occurrence: US)
  Receive Date: 20170515
  Receipt Date: 20200618
  Transmission Date: 20200713
  Serious: No
  Sender: FDA-Public Use
  Company Number: US-PFIZER INC-2017206784

PATIENT
  Age: 45 Year
  Sex: Female

DRUGS (2)
  1. CHANTIX [Suspect]
     Active Substance: VARENICLINE TARTRATE
     Indication: SMOKING CESSATION THERAPY
     Dosage: UNK
     Dates: start: 2013
  2. DILANTIN [Interacting]
     Active Substance: PHENYTOIN
     Indication: SEIZURE
     Dosage: 100 MG, 2X/DAY (1 CAP PO (ORAL) BID (TWICE A DAY)
     Route: 048

REACTIONS (4)
  - Dissociation [Unknown]
  - Feeling abnormal [Recovered/Resolved]
  - Drug interaction [Unknown]
  - Malaise [Recovered/Resolved]
